FAERS Safety Report 7124906-8 (Version None)
Quarter: 2010Q4

REPORT INFORMATION
  Report Type: 
  Country: None (occurrence: None)
  Receive Date: 20101112
  Receipt Date: 20101028
  Transmission Date: 20110411
  Serious: Yes (Other)
  Sender: FDA-Public Use
  Company Number: IDA-00455

PATIENT
  Age: 74 Year
  Sex: Female

DRUGS (3)
  1. INDERAL [Suspect]
     Indication: HYPERTENSION
     Dosage: SEE IMAGE
     Route: 048
     Dates: start: 19850101
  2. PREXIUM PLUS (INDAPAMIDE, PERINDOPRIL) [Concomitant]
  3. PERSANTIN [Concomitant]

REACTIONS (19)
  - AORTIC ANEURYSM [None]
  - CEREBRAL ATROPHY [None]
  - CONFUSIONAL STATE [None]
  - CONSTIPATION [None]
  - DIZZINESS [None]
  - DYSPHAGIA [None]
  - DYSPNOEA [None]
  - GINGIVAL SWELLING [None]
  - HEADACHE [None]
  - HYPERHIDROSIS [None]
  - HYPERTENSION [None]
  - HYPOTENSION [None]
  - INTENTIONAL DRUG MISUSE [None]
  - MITRAL VALVE INCOMPETENCE [None]
  - NAUSEA [None]
  - PALPITATIONS [None]
  - RENAL CYST [None]
  - TREMOR [None]
  - VOMITING [None]
